FAERS Safety Report 22250342 (Version 1)
Quarter: 2023Q2

REPORT INFORMATION
  Report Type: Spontaneous
  Country: AU (occurrence: AU)
  Receive Date: 20230425
  Receipt Date: 20230425
  Transmission Date: 20230721
  Serious: Yes (Other)
  Sender: FDA-Public Use
  Company Number: AU-BAYER-2020-102895

PATIENT
  Age: 48 Year
  Sex: Female

DRUGS (2)
  1. NEXAVAR [Suspect]
     Active Substance: SORAFENIB
     Dosage: 800 MG, QD
     Dates: start: 20160608
  2. STIVARGA [Suspect]
     Active Substance: REGORAFENIB
     Dosage: 160 MG, QD, 3 WEEKS ON / 1 WEEK OFF
     Dates: start: 20170316

REACTIONS (10)
  - Hepatocellular carcinoma [None]
  - Weight decreased [None]
  - Arthralgia [None]
  - Myalgia [None]
  - Weight decreased [None]
  - Fatigue [None]
  - Palmar-plantar erythrodysaesthesia syndrome [None]
  - Decreased appetite [None]
  - Nausea [None]
  - Weight decreased [None]

NARRATIVE: CASE EVENT DATE: 20160608
